FAERS Safety Report 7630610-X (Version None)
Quarter: 2011Q3

REPORT INFORMATION
  Report Type: 
  Country: None (occurrence: None)
  Receive Date: 20110722
  Receipt Date: 20110713
  Transmission Date: 20111222
  Serious: Yes (Hospitalization, Other)
  Sender: FDA-Public Use
  Company Number: US-ELI_LILLY_AND_COMPANY-US200906005670

PATIENT
  Sex: Female
  Weight: 71.202 kg

DRUGS (11)
  1. CRESTOR [Concomitant]
     Indication: BLOOD TRIGLYCERIDES
     Dosage: UNK
     Dates: start: 20061101
  2. VIVELLE [Concomitant]
     Dosage: 0.025 MG, QD
     Dates: start: 20060801, end: 20090701
  3. LOVAZA [Concomitant]
     Indication: BLOOD TRIGLYCERIDES
     Dosage: 4 G, QD
     Dates: start: 20080601
  4. PAXIL [Concomitant]
     Indication: DEPRESSION
     Dosage: 60 MG, QD
     Dates: start: 20050101, end: 20100201
  5. NIASPAN [Concomitant]
     Indication: BLOOD TRIGLYCERIDES
     Dosage: 2000 MG, QD
     Dates: start: 20061101
  6. BYETTA [Suspect]
     Dosage: UNK, UNK
     Dates: start: 20050601, end: 20060201
  7. LANTUS [Concomitant]
     Dosage: UNK
     Dates: start: 19981001
  8. METFORMIN HCL [Concomitant]
     Indication: BLOOD GLUCOSE INCREASED
     Dosage: 2000 MG, QD
     Dates: start: 20060201
  9. HUMALOG MIX 75/25 [Concomitant]
     Dosage: UNK
     Dates: start: 19981001
  10. TRICOR [Concomitant]
     Dosage: 145 MG, QD
  11. CALCIUM CARBONATE [Concomitant]
     Indication: SUPPLEMENTATION THERAPY
     Dosage: 600 MG, UNK

REACTIONS (7)
  - PANCREATITIS ACUTE [None]
  - OFF LABEL USE [None]
  - HYPERLIPIDAEMIA [None]
  - DIABETIC KETOACIDOSIS [None]
  - RENAL INJURY [None]
  - PANCREATITIS RELAPSING [None]
  - PANCREATITIS CHRONIC [None]
